FAERS Safety Report 7039836 (Version 6)
Quarter: 2013Q1

REPORT INFORMATION
  Report Type: Spontaneous
  Country: US (occurrence: US)
  Receive Date: 20090702
  Receipt Date: 20130107
  Transmission Date: 20140127
  Serious: Yes (Death, Other)
  Sender: FDA-Public Use
  Company Number: US-BIOGENIDEC-2009BI018865

PATIENT
  Age: 68 Year
  Sex: Female
  Weight: 70 kg

DRUGS (1)
  1. TYSABRI [Suspect]
     Indication: MULTIPLE SCLEROSIS
     Route: 042
     Dates: start: 20061226, end: 20090531

REACTIONS (4)
  - Small cell lung cancer [Fatal]
  - Metastatic neoplasm [Unknown]
  - Weight decreased [Unknown]
  - Abdominal pain upper [Unknown]
